FAERS Safety Report 10859541 (Version 1)
Quarter: 2015Q1

REPORT INFORMATION
  Report Type: Spontaneous
  Country: US (occurrence: US)
  Receive Date: 20150223
  Receipt Date: 20150223
  Transmission Date: 20150721
  Serious: No
  Sender: FDA-Public Use
  Company Number: US-CELGENEUS-163-21880-14085819

PATIENT
  Sex: Male
  Weight: 102.5 kg

DRUGS (4)
  1. REVLIMID [Suspect]
     Active Substance: LENALIDOMIDE
     Route: 065
     Dates: start: 200911, end: 2009
  2. DEXAMETHASONE. [Concomitant]
     Active Substance: DEXAMETHASONE
     Indication: PRODUCT USED FOR UNKNOWN INDICATION
     Route: 065
     Dates: end: 201408
  3. REVLIMID [Suspect]
     Active Substance: LENALIDOMIDE
     Route: 065
     Dates: start: 201001
  4. REVLIMID [Suspect]
     Active Substance: LENALIDOMIDE
     Indication: PLASMA CELL MYELOMA
     Route: 065
     Dates: start: 200909, end: 2009

REACTIONS (2)
  - Musculoskeletal stiffness [Not Recovered/Not Resolved]
  - Musculoskeletal pain [Not Recovered/Not Resolved]
